FAERS Safety Report 26157106 (Version 1)
Quarter: 2025Q4

REPORT INFORMATION
  Report Type: Spontaneous
  Country: US (occurrence: US)
  Receive Date: 20251215
  Receipt Date: 20251215
  Transmission Date: 20260118
  Serious: Yes (Life-Threatening, Hospitalization, Other)
  Sender: BANNER
  Company Number: None

PATIENT
  Age: 62 Year
  Sex: Male
  Weight: 112.5 kg

DRUGS (6)
  1. NAPROXEN [Interacting]
     Active Substance: NAPROXEN
     Indication: Arthralgia
  2. HYDROCHLOROTHIAZIDE [Interacting]
     Active Substance: HYDROCHLOROTHIAZIDE
     Indication: Product used for unknown indication
     Dosage: FOR 10 MONTHS, PATIENT HAD BEEN TAKING HYDROCHLOROTHIAZIDE
  3. KETOROLAC [Interacting]
     Active Substance: KETOROLAC TROMETHAMINE
     Indication: Back pain
  4. LISINOPRIL [Interacting]
     Active Substance: LISINOPRIL
     Indication: Product used for unknown indication
     Dosage: FOR 10 MONTHS, PATIENT HAD BEEN TAKING LISINOPRIL
  5. TRAMADOL [Concomitant]
     Active Substance: TRAMADOL
     Indication: Product used for unknown indication
     Dosage: FOR 10 MONTHS, PATIENT HAD BEEN TAKING TRAMADOL
  6. NAPROXEN [Interacting]
     Active Substance: NAPROXEN
     Indication: Arthralgia
     Dosage: INCREASED NAPROXEN TO THREE TIMES DAILY

REACTIONS (2)
  - Acute kidney injury [Recovered/Resolved]
  - Potentiating drug interaction [Recovered/Resolved]
